FAERS Safety Report 23371900 (Version 2)
Quarter: 2024Q1

REPORT INFORMATION
  Report Type: Spontaneous
  Country: ID (occurrence: ID)
  Receive Date: 20240105
  Receipt Date: 20240122
  Transmission Date: 20240410
  Serious: Yes (Other)
  Sender: FDA-Public Use
  Company Number: ID-PFIZER INC-PV202300202486

PATIENT
  Age: 81 Year
  Sex: Female

DRUGS (9)
  1. IBRANCE [Suspect]
     Active Substance: PALBOCICLIB
     Indication: Breast cancer metastatic
     Dosage: 100 MG, 1X/DAY
     Route: 048
     Dates: start: 202310
  2. IBRANCE [Suspect]
     Active Substance: PALBOCICLIB
     Dosage: IBRANCE 100 MG, THE NEXT DAY TAKE IBRANCE 125 MG
  3. IBRANCE [Suspect]
     Active Substance: PALBOCICLIB
     Dosage: 125 MG, 1X/DAY
     Route: 048
  4. FASLODEX [Suspect]
     Active Substance: FULVESTRANT
     Indication: Breast cancer metastatic
     Dosage: 250 MG, MONTHLY
     Dates: start: 2022
  5. FASLODEX [Suspect]
     Active Substance: FULVESTRANT
     Dosage: 250 MG, MONTHLY
     Dates: start: 202302
  6. ZOMETA [Suspect]
     Active Substance: ZOLEDRONIC ACID
     Indication: Bone disorder
     Dosage: 4 MG/100 ML, MONTHLY
     Dates: start: 2022
  7. ZOMETA [Suspect]
     Active Substance: ZOLEDRONIC ACID
     Dosage: 4 MG/100 ML, MONTHLY
     Dates: start: 202302
  8. LETROZOLE [Suspect]
     Active Substance: LETROZOLE
     Dosage: UNK, DAILY
     Route: 048
     Dates: start: 202302, end: 202310
  9. XARELTO [Suspect]
     Active Substance: RIVAROXABAN
     Indication: Anticoagulant therapy
     Dosage: UNK

REACTIONS (5)
  - Postmenopausal haemorrhage [Recovered/Resolved]
  - Neoplasm progression [Unknown]
  - Product use complaint [Unknown]
  - Product size issue [Unknown]
  - Wrong technique in product usage process [Unknown]

NARRATIVE: CASE EVENT DATE: 20230101
